FAERS Safety Report 8382319 (Version 3)
Quarter: 2015Q2

REPORT INFORMATION
  Report Type: Spontaneous
  Country: US (occurrence: US)
  Receive Date: 20120201
  Receipt Date: 20150508
  Transmission Date: 20150821
  Serious: Yes (Hospitalization, Other)
  Sender: FDA-Public Use
  Company Number: US-BAYER-2012-007872

PATIENT
  Age: 25 Year
  Sex: Female
  Weight: 75 kg

DRUGS (7)
  1. MIRENA [Suspect]
     Active Substance: LEVONORGESTREL
     Indication: CONTRACEPTION
     Dosage: 20 MCG/24HR, CONT
     Route: 015
     Dates: start: 20070112, end: 20120123
  2. MIRENA [Suspect]
     Active Substance: LEVONORGESTREL
     Indication: MENOMETRORRHAGIA
  3. IBUPROFEN. [Concomitant]
     Active Substance: IBUPROFEN
     Indication: MUSCLE SPASMS
     Dosage: UNK
     Dates: start: 2007
  4. ALBUTEROL INHALER [Concomitant]
     Active Substance: ALBUTEROL
  5. OXYCODONE [Concomitant]
     Active Substance: OXYCODONE
     Indication: MUSCLE SPASMS
     Dosage: UNK
     Dates: start: 2007
  6. COMBIVENT [Concomitant]
     Active Substance: ALBUTEROL SULFATE\IPRATROPIUM BROMIDE
  7. VICODIN [Concomitant]
     Active Substance: ACETAMINOPHEN\HYDROCODONE BITARTRATE

REACTIONS (23)
  - Uterine perforation [Recovered/Resolved]
  - Uterine enlargement [Recovered/Resolved]
  - Depression [None]
  - Device dislocation [Recovered/Resolved]
  - Pregnancy with contraceptive device [Recovered/Resolved]
  - Pelvic pain [Recovered/Resolved]
  - Emotional distress [None]
  - Menstruation delayed [Recovered/Resolved]
  - Endometriosis [None]
  - Uterine leiomyoma [None]
  - Vomiting [None]
  - Haemorrhage in pregnancy [None]
  - Pyrexia [None]
  - Genital haemorrhage [None]
  - Anxiety [None]
  - Ovarian cyst [None]
  - Pelvic inflammatory disease [None]
  - Polymenorrhoea [None]
  - Device issue [None]
  - Abortion spontaneous [None]
  - Ovarian fibroma [None]
  - Injury [Recovered/Resolved]
  - Nausea [None]

NARRATIVE: CASE EVENT DATE: 2007
